FAERS Safety Report 23883735 (Version 1)
Quarter: 2024Q2

REPORT INFORMATION
  Report Type: Other
  Country: US (occurrence: None)
  Receive Date: 20240522
  Receipt Date: 20240522
  Transmission Date: 20240715
  Serious: Yes (Hospitalization)
  Sender: FDA-Public Use
  Company Number: US-Navinta LLC-000500

PATIENT
  Age: 55 Year
  Sex: Female

DRUGS (2)
  1. FAMOTIDINE [Interacting]
     Active Substance: FAMOTIDINE
     Indication: Product used for unknown indication
  2. DIETARY SUPPLEMENT\HERBALS [Interacting]
     Active Substance: DIETARY SUPPLEMENT\HERBALS
     Indication: Weight decreased

REACTIONS (3)
  - Hypertransaminasaemia [Recovered/Resolved]
  - Drug interaction [Recovered/Resolved]
  - Therapy partial responder [Unknown]
